FAERS Safety Report 23545507 (Version 1)
Quarter: 2024Q1

REPORT INFORMATION
  Report Type: Spontaneous
  Country: PT (occurrence: PT)
  Receive Date: 20240220
  Receipt Date: 20240220
  Transmission Date: 20240410
  Serious: Yes (Hospitalization, Other)
  Sender: FDA-Public Use
  Company Number: PT-TEVA-VS-3154814

PATIENT
  Age: 19 Year
  Sex: Male

DRUGS (3)
  1. LORAZEPAM [Suspect]
     Active Substance: LORAZEPAM
     Dosage: NUMEROUS PILLS
  2. TOPIRAMATE [Suspect]
     Active Substance: TOPIRAMATE
     Dosage: NUMEROUS PILLS
  3. PAROXETINE [Suspect]
     Active Substance: PAROXETINE
     Dosage: NUMEROUS PILLS

REACTIONS (2)
  - Intentional overdose [Unknown]
  - Metabolic acidosis [Recovered/Resolved]
